FAERS Safety Report 9682035 (Version 1)
Quarter: 2013Q4

REPORT INFORMATION
  Report Type: Spontaneous
  Country: US (occurrence: US)
  Receive Date: 20131111
  Receipt Date: 20131111
  Transmission Date: 20140711
  Serious: Yes (Other)
  Sender: FDA-Public Use
  Company Number: US-GILEAD-2013-0087179

PATIENT
  Age: 65 Year
  Sex: Male

DRUGS (3)
  1. RANEXA [Suspect]
     Indication: PRODUCT USED FOR UNKNOWN INDICATION
     Dosage: 1000 MG, UNK
  2. RANEXA [Suspect]
     Dosage: 500 MG, UNK
  3. RANEXA [Suspect]
     Dosage: 500 MG, UNK

REACTIONS (1)
  - Angina pectoris [Recovered/Resolved]
